FAERS Safety Report 14303665 (Version 1)
Quarter: 2017Q4

REPORT INFORMATION
  Report Type: Spontaneous
  Country: DE (occurrence: DE)
  Receive Date: 20171219
  Receipt Date: 20171219
  Transmission Date: 20180321
  Serious: Yes (Other)
  Sender: FDA-Public Use
  Company Number: DE-OTSUKA-2017_015269

PATIENT
  Age: 42 Year
  Sex: Male

DRUGS (8)
  1. PIPAMPERONE [Concomitant]
     Active Substance: PIPAMPERONE
     Dosage: UPTO 40MG/DAY
     Route: 065
     Dates: start: 201705
  2. ABILIFY MAINTENA [Suspect]
     Active Substance: ARIPIPRAZOLE
     Indication: MANIA
     Dosage: 400 MG, UNK
     Route: 030
     Dates: start: 20160721
  3. ABILIFY MAINTENA [Suspect]
     Active Substance: ARIPIPRAZOLE
     Indication: DELUSION
  4. ABILIFY [Suspect]
     Active Substance: ARIPIPRAZOLE
     Indication: SCHIZOAFFECTIVE DISORDER
     Dosage: 15 MG, QD
     Route: 048
     Dates: end: 20170627
  5. ABILIFY MAINTENA [Suspect]
     Active Substance: ARIPIPRAZOLE
     Indication: SCHIZOAFFECTIVE DISORDER
     Dosage: 400 MG, UNK
     Route: 030
     Dates: start: 20160622
  6. ABILIFY [Suspect]
     Active Substance: ARIPIPRAZOLE
     Indication: MANIA
  7. ABILIFY [Suspect]
     Active Substance: ARIPIPRAZOLE
     Indication: DELUSION
     Dosage: UNK
     Route: 065
  8. PIPAMPERONE [Concomitant]
     Active Substance: PIPAMPERONE
     Indication: SLEEP DISORDER
     Dosage: 20-40MG AS NEEDED
     Route: 065
     Dates: start: 201705

REACTIONS (26)
  - Somnolence [Unknown]
  - Hypertension [Unknown]
  - Pain [Unknown]
  - Blood pressure abnormal [Unknown]
  - Vertigo [Recovered/Resolved]
  - Irritability [Unknown]
  - Aggression [Unknown]
  - Asthenia [Unknown]
  - Suicidal ideation [Recovering/Resolving]
  - Hangover [Unknown]
  - Apathy [Recovering/Resolving]
  - Gait disturbance [Unknown]
  - Pain in extremity [Unknown]
  - Sleep disorder [Unknown]
  - Hypokinesia [Unknown]
  - Restlessness [Unknown]
  - Limb discomfort [Unknown]
  - Myalgia [Unknown]
  - Off label use [Unknown]
  - Musculoskeletal pain [Unknown]
  - Arrhythmia [Unknown]
  - Chest pain [Unknown]
  - Hypoaesthesia oral [Unknown]
  - Feeling abnormal [Unknown]
  - Hypoaesthesia [Unknown]
  - Muscular weakness [Unknown]

NARRATIVE: CASE EVENT DATE: 20170623
